FAERS Safety Report 10479199 (Version 3)
Quarter: 2014Q4

REPORT INFORMATION
  Report Type: Spontaneous
  Country: JP (occurrence: JP)
  Receive Date: 20140926
  Receipt Date: 20141230
  Transmission Date: 20150528
  Serious: Yes (Other)
  Sender: FDA-Public Use
  Company Number: JP-BRISTOL-MYERS SQUIBB COMPANY-21363817

PATIENT
  Age: 73 Year
  Sex: Male

DRUGS (2)
  1. BAYASPIRIN [Suspect]
     Active Substance: ASPIRIN
     Indication: PRODUCT USED FOR UNKNOWN INDICATION
     Dosage: UNK
     Route: 065
     Dates: end: 20140911
  2. ELIQUIS [Suspect]
     Active Substance: APIXABAN
     Indication: CEREBROVASCULAR ACCIDENT PROPHYLAXIS
     Dosage: TABLET  DOSE REDUCED:2.5 MG
     Route: 048
     Dates: start: 201408, end: 20140904

REACTIONS (4)
  - Melaena [Unknown]
  - Anaemia [Unknown]
  - Rectal ulcer haemorrhage [Unknown]
  - Occult blood [Recovered/Resolved]

NARRATIVE: CASE EVENT DATE: 20140822
